FAERS Safety Report 19330438 (Version 3)
Quarter: 2021Q3

REPORT INFORMATION
  Report Type: Spontaneous
  Country: US (occurrence: US)
  Receive Date: 20210528
  Receipt Date: 20210702
  Transmission Date: 20211014
  Serious: No
  Sender: FDA-Public Use
  Company Number: US-ALKERMES INC.-ALK-2021-002786

PATIENT
  Age: 54 Year
  Sex: Female

DRUGS (3)
  1. VIVITROL [Suspect]
     Active Substance: NALTREXONE
     Indication: DRUG DEPENDENCE
  2. VIVITROL [Suspect]
     Active Substance: NALTREXONE
     Indication: ALCOHOLISM
     Dosage: 380 MILLIGRAM, QMO
     Route: 030
     Dates: start: 202011
  3. VIVITROL [Suspect]
     Active Substance: NALTREXONE
     Indication: SUBSTANCE DEPENDENCE

REACTIONS (2)
  - Off label use [Not Recovered/Not Resolved]
  - Dental operation [Recovered/Resolved]

NARRATIVE: CASE EVENT DATE: 202011
